FAERS Safety Report 17003534 (Version 1)
Quarter: 2019Q4

REPORT INFORMATION
  Report Type: Spontaneous
  Country: US (occurrence: US)
  Receive Date: 20191107
  Receipt Date: 20191107
  Transmission Date: 20200122
  Serious: No
  Sender: FDA-Public Use
  Company Number: US-AUROBINDO-AUR-APL-2019-043893

PATIENT

DRUGS (2)
  1. FLUCONAZOLE FOR ORAL SUSPENSION 10 MG/ML [Suspect]
     Active Substance: FLUCONAZOLE
     Indication: ORAL CANDIDIASIS
     Dosage: 5 MILLIGRAM, ONCE A DAY
     Route: 048
     Dates: start: 20190717
  2. FLUCONAZOLE FOR ORAL SUSPENSION 10 MG/ML [Suspect]
     Active Substance: FLUCONAZOLE
     Dosage: 2.5 MILLIGRAM, ONCE A DAY
     Route: 048
     Dates: start: 20190717

REACTIONS (3)
  - Cough [Recovered/Resolved]
  - Incorrect dose administered [Unknown]
  - Retching [Recovered/Resolved]

NARRATIVE: CASE EVENT DATE: 20190717
